FAERS Safety Report 4393118-3 (Version None)
Quarter: 2004Q3

REPORT INFORMATION
  Report Type: 
  Country: None (occurrence: None)
  Receive Date: 20040706
  Receipt Date: 20040628
  Transmission Date: 20050211
  Serious: Yes (Other)
  Sender: FDA-Public Use
  Company Number: 200414941US

PATIENT
  Sex: Male

DRUGS (2)
  1. CARAC [Suspect]
     Indication: PRECANCEROUS CELLS PRESENT
     Dosage: DOSE: UNK
  2. CARDIOVASCULAR SYSTEM DRUGS [Concomitant]
     Indication: HYPERTENSION

REACTIONS (2)
  - BIOPSY SITE UNSPECIFIED ABNORMAL [None]
  - PHARYNGITIS [None]
